FAERS Safety Report 22270158 (Version 4)
Quarter: 2023Q4

REPORT INFORMATION
  Report Type: Report from Study
  Country: CA (occurrence: CA)
  Receive Date: 20230501
  Receipt Date: 20231101
  Transmission Date: 20240110
  Serious: Yes (Other)
  Sender: FDA-Public Use
  Company Number: CA-OTSUKA-2022_046506

PATIENT
  Sex: Female

DRUGS (2)
  1. CEDAZURIDINE\DECITABINE [Suspect]
     Active Substance: CEDAZURIDINE\DECITABINE
     Indication: Myelodysplastic syndrome
     Dosage: (35 MG DECITABINE AND 100 MG CEDAZURIDINE)
     Route: 065
     Dates: start: 20220815
  2. CEDAZURIDINE\DECITABINE [Suspect]
     Active Substance: CEDAZURIDINE\DECITABINE
     Dosage: 3 PIILS/CYCLE
     Route: 065
     Dates: start: 20221017

REACTIONS (6)
  - Hepatic cyst [Unknown]
  - Cellulitis [Unknown]
  - Full blood count abnormal [Unknown]
  - Constipation [Unknown]
  - Therapy interrupted [Unknown]
  - Inappropriate schedule of product administration [Unknown]
